FAERS Safety Report 6052657-X (Version None)
Quarter: 2009Q1

REPORT INFORMATION
  Report Type: 
  Country: None (occurrence: None)
  Receive Date: 20090121
  Receipt Date: 20090106
  Transmission Date: 20090719
  Serious: No
  Sender: FDA-Public Use
  Company Number: 232495K08USA

PATIENT
  Age: 55 Year
  Sex: Female
  Weight: 77 kg

DRUGS (4)
  1. REBIF [Suspect]
     Indication: MULTIPLE SCLEROSIS
     Dosage: 44 MCG, 3 IN 1 WEEKS, SUBCUTANEOUS
     Route: 058
     Dates: start: 20080818, end: 20081126
  2. ADVIL LIQUI-GELS [Concomitant]
  3. LESCOL (FLUVASTATIN /01224501/) [Concomitant]
  4. ATENOLOL [Concomitant]

REACTIONS (4)
  - BLADDER REPAIR [None]
  - CHEST DISCOMFORT [None]
  - DYSPNOEA [None]
  - ELECTROCARDIOGRAM ABNORMAL [None]
